FAERS Safety Report 9001001 (Version 2)
Quarter: 2013Q1

REPORT INFORMATION
  Report Type: Spontaneous
  Country: US (occurrence: US)
  Receive Date: 20130107
  Receipt Date: 20130214
  Transmission Date: 20140127
  Serious: Yes (Other)
  Sender: FDA-Public Use
  Company Number: PHEH2013US000507

PATIENT
  Sex: Female

DRUGS (7)
  1. TRILEPTAL [Suspect]
     Indication: NEURALGIA
  2. DIOVAN [Suspect]
     Indication: BLOOD PRESSURE
     Dosage: 320 MG, UNK
  3. METOPROLOL [Suspect]
     Indication: BLOOD PRESSURE
     Dosage: 50 MG, UNK
  4. LEVOXYL [Suspect]
     Indication: THYROID DISORDER
     Dosage: 75 UG, (1 A DAY)
     Route: 048
  5. PRILOSEC [Suspect]
     Indication: REFLUX GASTRITIS
  6. IRON [Suspect]
  7. NORVASC [Suspect]
     Dosage: 10 MG, UNK

REACTIONS (3)
  - Perforation bile duct [Unknown]
  - Malaise [Unknown]
  - Nervousness [Unknown]
